FAERS Safety Report 8177483-7 (Version None)
Quarter: 2012Q1

REPORT INFORMATION
  Report Type: 
  Country: None (occurrence: None)
  Receive Date: 20120301
  Receipt Date: 20120222
  Transmission Date: 20120608
  Serious: Yes (Disabling, Other)
  Sender: FDA-Public Use
  Company Number: US-JNJFOC-20111004982

PATIENT
  Age: 43 Year
  Sex: Female
  Weight: 57.61 kg

DRUGS (7)
  1. REMICADE [Suspect]
     Indication: CROHN'S DISEASE
     Route: 042
     Dates: start: 20000201, end: 20021001
  2. NEURONTIN [Concomitant]
     Dosage: (LARGE DOSE)
     Route: 065
  3. METHOTREXATE [Concomitant]
     Route: 065
  4. REMICADE [Suspect]
     Indication: ARTHRITIS
     Route: 042
     Dates: start: 20000201, end: 20021001
  5. REMICADE [Suspect]
     Route: 042
     Dates: start: 20021001, end: 20031222
  6. REMICADE [Suspect]
     Route: 042
     Dates: start: 20021001, end: 20031222
  7. HEPARIN SULFATE [Suspect]
     Indication: FLUSHING
     Route: 065

REACTIONS (13)
  - MYOCARDIAL INFARCTION [None]
  - INSTILLATION SITE FOREIGN BODY SENSATION [None]
  - HAEMOPHILIA [None]
  - STRESS [None]
  - KIDNEY ENLARGEMENT [None]
  - VARIANT CREUTZFELDT-JAKOB DISEASE [None]
  - DEPRESSION [None]
  - THROMBOCYTOPENIA [None]
  - DEAFNESS [None]
  - DEPENDENCE [None]
  - ORGAN FAILURE [None]
  - ARTHRITIS [None]
  - NEUROPATHY PERIPHERAL [None]
